FAERS Safety Report 4589351-8 (Version None)
Quarter: 2005Q1

REPORT INFORMATION
  Report Type: 
  Country: None (occurrence: None)
  Receive Date: 20050216
  Receipt Date: 20050131
  Transmission Date: 20050727
  Serious: Yes (Hospitalization)
  Sender: FDA-Public Use
  Company Number: ACO_0128_2005

PATIENT
  Age: 39 Year
  Sex: Female

DRUGS (3)
  1. SIRDALUD [Suspect]
     Indication: OSTEOARTHRITIS
     Dosage: 20 MG QDAY PO
     Route: 048
     Dates: start: 20041210, end: 20050111
  2. OXAPROZIN [Concomitant]
  3. KENACORT [Concomitant]

REACTIONS (3)
  - CONFUSIONAL STATE [None]
  - GAIT DISTURBANCE [None]
  - VERTIGO [None]
